FAERS Safety Report 25204226 (Version 2)
Quarter: 2025Q3

REPORT INFORMATION
  Report Type: Spontaneous
  Country: JP (occurrence: JP)
  Receive Date: 20250416
  Receipt Date: 20250809
  Transmission Date: 20251020
  Serious: Yes (Hospitalization, Other)
  Sender: ALEXION PHARMACEUTICALS
  Company Number: JP-ASTRAZENECA-240100669_064320_P_1

PATIENT
  Age: 74 Year
  Sex: Male

DRUGS (9)
  1. ANDEXXA [Suspect]
     Active Substance: ANDEXANET ALFA
     Indication: Tumour haemorrhage
     Dates: start: 20221111, end: 20221111
  2. XARELTO [Concomitant]
     Active Substance: RIVAROXABAN
  3. XARELTO [Concomitant]
     Active Substance: RIVAROXABAN
  4. PROPOFOL [Concomitant]
     Active Substance: PROPOFOL
  5. ROCURONIUM BROMIDE [Concomitant]
     Active Substance: ROCURONIUM BROMIDE
  6. MANNITOL [Concomitant]
     Active Substance: MANNITOL
  7. EPHEDRINE [Concomitant]
     Active Substance: EPHEDRINE
  8. NEOSYNESIN [Concomitant]
     Active Substance: PHENYLEPHRINE HYDROCHLORIDE
  9. CEFAZOLIN SODIUM [Concomitant]
     Active Substance: CEFAZOLIN SODIUM

REACTIONS (2)
  - Embolic cerebral infarction [Unknown]
  - Atrial fibrillation [Unknown]

NARRATIVE: CASE EVENT DATE: 20221112
